FAERS Safety Report 4548405-2 (Version None)
Quarter: 2004Q4

REPORT INFORMATION
  Report Type: 
  Country: None (occurrence: None)
  Receive Date: 20041220
  Receipt Date: 20040730
  Transmission Date: 20050328
  Serious: Yes (Hospitalization)
  Sender: FDA-Public Use
  Company Number: US_030795813

PATIENT
  Sex: Male
  Weight: 120 kg

DRUGS (5)
  1. HUMALOG [Suspect]
     Indication: DIABETES MELLITUS
     Dates: start: 19990101
  2. HUMULIN R [Suspect]
     Dates: end: 19990101
  3. HUMULIN N [Suspect]
     Dates: end: 19990101
  4. LANTUS [Concomitant]
  5. MORPHINE [Concomitant]

REACTIONS (12)
  - BLOOD GLUCOSE INCREASED [None]
  - CHILLS [None]
  - DECREASED APPETITE [None]
  - DERMATITIS CONTACT [None]
  - FATIGUE [None]
  - FEELING ABNORMAL [None]
  - HYPERHIDROSIS [None]
  - INSOMNIA [None]
  - INTERVERTEBRAL DISC DEGENERATION [None]
  - NEPHROLITHIASIS [None]
  - PAIN [None]
  - WEIGHT INCREASED [None]
